FAERS Safety Report 7726780-5 (Version None)
Quarter: 2011Q3

REPORT INFORMATION
  Report Type: 
  Country: None (occurrence: None)
  Receive Date: 20110902
  Receipt Date: 20110829
  Transmission Date: 20111222
  Serious: Yes (Other)
  Sender: FDA-Public Use
  Company Number: US-GLAXOSMITHKLINE-A0942716A

PATIENT
  Age: 62 Year
  Sex: Female

DRUGS (2)
  1. VITAMIN TAB [Concomitant]
  2. VERAMYST [Suspect]
     Indication: MULTIPLE ALLERGIES
     Dosage: 2PUFF PER DAY
     Route: 045
     Dates: start: 20110823, end: 20110825

REACTIONS (6)
  - FLUSHING [None]
  - PARAESTHESIA [None]
  - CEREBROVASCULAR ACCIDENT [None]
  - HYPERHIDROSIS [None]
  - FEELING HOT [None]
  - BLOOD GLUCOSE DECREASED [None]
